FAERS Safety Report 6129749-X (Version None)
Quarter: 2009Q1

REPORT INFORMATION
  Report Type: 
  Country: None (occurrence: None)
  Receive Date: 20090324
  Receipt Date: 20090313
  Transmission Date: 20090719
  Serious: Yes (Hospitalization)
  Sender: FDA-Public Use
  Company Number: B0564808A

PATIENT
  Age: 79 Year
  Sex: Female

DRUGS (5)
  1. PAROXETINE HCL [Suspect]
     Dosage: 10MG PER DAY
     Route: 065
  2. AMLODIPINE [Concomitant]
     Dosage: 5MG PER DAY
  3. MIRTAZAPINE [Concomitant]
     Dosage: 30MG PER DAY
  4. DONEPEZIL HCL [Concomitant]
     Dosage: 10MG PER DAY
  5. ACETAMINOPHEN [Concomitant]

REACTIONS (18)
  - AGITATION [None]
  - BLOOD CREATINE PHOSPHOKINASE ABNORMAL [None]
  - BODY TEMPERATURE INCREASED [None]
  - CHILLS [None]
  - CONDITION AGGRAVATED [None]
  - CONFUSIONAL STATE [None]
  - DECREASED APPETITE [None]
  - DELIRIUM [None]
  - DEPRESSED MOOD [None]
  - HYPERHIDROSIS [None]
  - IMMOBILE [None]
  - MENINGITIS [None]
  - MENTAL STATUS CHANGES [None]
  - MUSCULAR WEAKNESS [None]
  - RHABDOMYOLYSIS [None]
  - SEROTONIN SYNDROME [None]
  - TREMOR [None]
  - URINARY INCONTINENCE [None]
